FAERS Safety Report 7690633-1 (Version None)
Quarter: 2011Q3

REPORT INFORMATION
  Report Type: 
  Country: None (occurrence: None)
  Receive Date: 20110818
  Receipt Date: 20110808
  Transmission Date: 20111222
  Serious: Yes (Other)
  Sender: FDA-Public Use
  Company Number: GB-JNJFOC-20110805402

PATIENT

DRUGS (1)
  1. ITRACONAZOLE [Suspect]
     Indication: ASPERGILLOSIS
     Route: 065

REACTIONS (1)
  - HAEMATOTOXICITY [None]
